FAERS Safety Report 4927534-5 (Version None)
Quarter: 2006Q1

REPORT INFORMATION
  Report Type: 
  Country: None (occurrence: None)
  Receive Date: 20060228
  Receipt Date: 20060216
  Transmission Date: 20060701
  Serious: Yes (Hospitalization)
  Sender: FDA-Public Use
  Company Number: FR-ROCHE-437063

PATIENT
  Age: 28 Year
  Sex: Male

DRUGS (8)
  1. ROCEPHIN [Suspect]
     Indication: DRUG USE FOR UNKNOWN INDICATION
     Route: 065
     Dates: start: 20060203, end: 20060207
  2. VFEND [Suspect]
     Indication: DRUG USE FOR UNKNOWN INDICATION
     Route: 065
     Dates: start: 20060203, end: 20060207
  3. GLEEVEC [Suspect]
     Indication: DRUG USE FOR UNKNOWN INDICATION
     Route: 042
     Dates: start: 20060201, end: 20060207
  4. OMEPRAZOLE [Suspect]
     Indication: DRUG USE FOR UNKNOWN INDICATION
     Route: 065
     Dates: start: 20060207, end: 20060207
  5. TRANXENE [Suspect]
     Indication: DRUG USE FOR UNKNOWN INDICATION
     Dosage: WHEN NEEDED.
     Route: 065
     Dates: end: 20060207
  6. OFLOCET [Suspect]
     Indication: DRUG USE FOR UNKNOWN INDICATION
     Route: 065
     Dates: start: 20060203, end: 20060207
  7. SPECIAFOLDINE [Concomitant]
  8. ATARAX [Concomitant]
     Dosage: WHEN NEEDED AND NOT TAKEN.

REACTIONS (1)
  - HEPATITIS [None]
